FAERS Safety Report 25331542 (Version 1)
Quarter: 2025Q2

REPORT INFORMATION
  Report Type: Spontaneous
  Country: CN (occurrence: CN)
  Receive Date: 20250519
  Receipt Date: 20250519
  Transmission Date: 20250717
  Serious: Yes (Hospitalization, Other)
  Sender: ALEXION PHARMACEUTICALS
  Company Number: CN-AstraZeneca-CH-00871419A

PATIENT
  Age: 53 Year

DRUGS (2)
  1. TAGRISSO [Suspect]
     Active Substance: OSIMERTINIB
     Indication: Lung neoplasm malignant
     Route: 065
  2. SAVOLITINIB [Suspect]
     Active Substance: SAVOLITINIB
     Route: 065

REACTIONS (4)
  - Metastasis [Unknown]
  - Malignant neoplasm progression [Unknown]
  - Pyrexia [Unknown]
  - White blood cell count decreased [Unknown]
